FAERS Safety Report 8277920-3 (Version None)
Quarter: 2012Q2

REPORT INFORMATION
  Report Type: 
  Country: None (occurrence: None)
  Receive Date: 20120412
  Receipt Date: 20120402
  Transmission Date: 20120825
  Serious: Yes (Hospitalization)
  Sender: FDA-Public Use
  Company Number: ES-ELI_LILLY_AND_COMPANY-ES201204001089

PATIENT
  Sex: Female
  Weight: 80 kg

DRUGS (8)
  1. ALPRAZOLAM [Concomitant]
     Indication: DEPRESSION
     Dosage: 1 DF, QD
     Route: 048
  2. SIMVASTATIN [Concomitant]
     Indication: HYPERLIPIDAEMIA
     Dosage: 1 DF, QD
     Route: 048
  3. ASPIRIN [Concomitant]
     Indication: ARRHYTHMIA
     Dosage: 1 DF, QD
     Route: 048
  4. METFORMIN HCL [Concomitant]
     Indication: DIABETES MELLITUS
     Dosage: 1 DF, QD
     Route: 048
  5. PERINDOPRIL ERBUMINE [Concomitant]
     Indication: HYPERTENSION
     Dosage: 1 DF, QD
     Route: 048
  6. FORTEO [Suspect]
     Indication: OSTEOPOROSIS
     Dosage: 20 UG, QD
     Route: 058
     Dates: start: 20101001, end: 20120201
  7. AMLODIPINE [Concomitant]
     Indication: HYPERTENSION
     Dosage: 1 DF, QD
     Route: 048
  8. FLECAINIDE ACETATE [Concomitant]
     Indication: ARRHYTHMIA
     Dosage: 1 DF, QD
     Route: 048

REACTIONS (1)
  - HUMERUS FRACTURE [None]
